FAERS Safety Report 5404426-9 (Version None)
Quarter: 2007Q4

REPORT INFORMATION
  Report Type: 
  Country: None (occurrence: None)
  Receive Date: 20070711
  Receipt Date: 20061016
  Transmission Date: 20080405
  Serious: Yes (Hospitalization, Other)
  Sender: FDA-Public Use
  Company Number: 238338

PATIENT
  Age: 59 Year
  Sex: Female
  Weight: 71.7 kg

DRUGS (19)
  1. ACTIVELLA [Suspect]
     Indication: MENOPAUSAL SYMPTOMS
     Dosage: ORAL
     Route: 048
     Dates: start: 20010901, end: 20011201
  2. PREMPRO [Suspect]
     Indication: MENOPAUSAL SYMPTOMS
     Dosage: 0.625 MG/2.5 MG
     Dates: start: 19970416, end: 20010822
  3. PREMPRO [Suspect]
     Indication: MENOPAUSAL SYMPTOMS
     Dosage: 0.625 MG/2.5 MG
     Dates: start: 20020305, end: 20020916
  4. PREMARIN [Suspect]
     Indication: MENOPAUSAL SYMPTOMS
     Dosage: 0.625 MG
     Dates: start: 19910401
  5. PREMARIN [Suspect]
     Indication: MENOPAUSAL SYMPTOMS
     Dosage: 0.625 MG
     Dates: start: 19971001
  6. PROVERA [Suspect]
     Indication: MENOPAUSAL SYMPTOMS
     Dosage: 2.5 MG
     Dates: start: 19910401
  7. ESTROGEN NOS (ESTROGEN NOS) INJECTION [Suspect]
     Indication: MENSTRUAL DISORDER
     Dates: start: 19920101
  8. MPA (MEDROXPROGESTERONE ACETATE) [Suspect]
     Indication: HORMONE REPLACEMENT THERAPY
  9. LANOXIN [Concomitant]
  10. TENORMIN [Concomitant]
  11. CIMETIDINE [Concomitant]
  12. LOPID [Concomitant]
  13. NEXIUM [Concomitant]
  14. METOCLOPRAMID (METOCLOPRAMIDE) [Concomitant]
  15. DIOVAN [Concomitant]
  16. HYDROCHLOROTHIAZIDE [Concomitant]
  17. SYNTHROD (LEVOTHYROXINE SODIUM) [Concomitant]
  18. NORVASC [Concomitant]
  19. FOSAMAX [Concomitant]

REACTIONS (1)
  - BREAST CANCER [None]
